FAERS Safety Report 8487849-3 (Version None)
Quarter: 2012Q2

REPORT INFORMATION
  Report Type: 
  Country: None (occurrence: None)
  Receive Date: 20120402
  Receipt Date: 20110404
  Transmission Date: 20120825
  Serious: Yes (Other)
  Sender: FDA-Public Use
  Company Number: PHHY2011US29607

PATIENT
  Sex: Female

DRUGS (6)
  1. XANAX [Concomitant]
  2. EXFORGE [Suspect]
     Dosage: 5/320MG
  3. CLONIDINE [Concomitant]
  4. ASPIRIN [Suspect]
  5. METOPROLOL TARTRATE [Concomitant]
  6. TRIBENZOR [Concomitant]

REACTIONS (4)
  - HYPOTENSION [None]
  - VISION BLURRED [None]
  - TINNITUS [None]
  - ASTHENIA [None]
